FAERS Safety Report 8235429-7 (Version None)
Quarter: 2012Q1

REPORT INFORMATION
  Report Type: 
  Country: None (occurrence: None)
  Receive Date: 20120322
  Receipt Date: 20120313
  Transmission Date: 20120608
  Serious: Yes (Death)
  Sender: FDA-Public Use
  Company Number: CIP-2012-00090

PATIENT

DRUGS (2)
  1. CARBOPLATIN [Suspect]
     Indication: BLADDER TRANSITIONAL CELL CARCINOMA
     Dosage: AUC-4.5 (DAY 1 EVERY 21 DAYS)
  2. GEMCITABINE [Suspect]
     Indication: BLADDER TRANSITIONAL CELL CARCINOMA
     Dosage: 1000 MG/M2 (DAY 1 AND 8 EVERY 21 DAYS)

REACTIONS (1)
  - PNEUMONIA [None]
